FAERS Safety Report 9090039 (Version 1)
Quarter: 2013Q1

REPORT INFORMATION
  Report Type: Spontaneous
  Country: US (occurrence: US)
  Receive Date: 20130218
  Receipt Date: 20130218
  Transmission Date: 20140127
  Serious: No
  Sender: FDA-Public Use
  Company Number: US-ABBOTT-12P-163-0926728-00

PATIENT
  Sex: Male
  Weight: 84.44 kg

DRUGS (4)
  1. SIMCOR [Suspect]
     Indication: BLOOD CHOLESTEROL
     Dosage: 1000/40
  2. TRIBENZOR [Concomitant]
     Indication: HYPERTENSION
  3. OMEPRAZOLE [Concomitant]
     Indication: PRODUCT USED FOR UNKNOWN INDICATION
  4. FLONASE [Concomitant]
     Indication: SEASONAL ALLERGY

REACTIONS (4)
  - Arthralgia [Not Recovered/Not Resolved]
  - Joint instability [Not Recovered/Not Resolved]
  - Back pain [Recovering/Resolving]
  - Rash papular [Not Recovered/Not Resolved]
